FAERS Safety Report 6398913-7 (Version None)
Quarter: 2009Q4

REPORT INFORMATION
  Report Type: 
  Country: None (occurrence: None)
  Receive Date: 20091007
  Receipt Date: 20090928
  Transmission Date: 20100525
  Serious: Yes (Other)
  Sender: FDA-Public Use
  Company Number: GXKR2009FR10746

PATIENT
  Age: 57 Year
  Sex: Male

DRUGS (8)
  1. BROMOCRIPTINE (NGX) (BROMOCRIPTINE) UNKNOWN [Suspect]
     Indication: PARKINSON'S DISEASE
  2. PERGOLIDE (NGX) (PERGOLIDE) UNKNOWN [Suspect]
     Indication: PARKINSON'S DISEASE
     Dates: end: 20051101
  3. PIRIBEDIL (PIRIBEDIL) [Concomitant]
     Indication: PARKINSON'S DISEASE
     Dates: start: 20051101, end: 20060401
  4. LEVODOPA (LEVODOPA) [Suspect]
     Indication: PARKINSON'S DISEASE
     Dates: end: 20060401
  5. BENSERAZIDE (BENSERAZIDE) [Suspect]
     Indication: PARKINSON'S DISEASE
     Dates: end: 20060401
  6. TOLCAPONE (TOLCAPONE) [Suspect]
     Indication: PARKINSON'S DISEASE
  7. CARBIDOPA (CARBIDOPA) [Suspect]
     Indication: PARKINSON'S DISEASE
     Dates: end: 20060401
  8. ENTACAPONE (ENTACAPONE) [Suspect]
     Indication: PARKINSON'S DISEASE
     Dates: end: 20060401

REACTIONS (4)
  - CENTRAL NERVOUS SYSTEM STIMULATION [None]
  - DOPAMINE DYSREGULATION SYNDROME [None]
  - DRUG ABUSE [None]
  - PATHOLOGICAL GAMBLING [None]
